FAERS Safety Report 17377264 (Version 1)
Quarter: 2020Q1

REPORT INFORMATION
  Report Type: Spontaneous
  Country: US (occurrence: US)
  Receive Date: 20200122
  Receipt Date: 20200122
  Transmission Date: 20200409
  Serious: Yes (Hospitalization)
  Sender: FDA-Public Use
  Company Number: None

PATIENT
  Age: 62 Year
  Sex: Female

DRUGS (2)
  1. NERLYNX [Suspect]
     Active Substance: NERATINIB
  2. CAPECITABINE 500MG TAB [Suspect]
     Active Substance: CAPECITABINE
     Route: 048
     Dates: start: 20200107

REACTIONS (3)
  - Candida infection [None]
  - Malignant neoplasm progression [None]
  - Monoplegia [None]

NARRATIVE: CASE EVENT DATE: 20200121
